FAERS Safety Report 17402696 (Version 1)
Quarter: 2020Q1

REPORT INFORMATION
  Report Type: Spontaneous
  Country: DE (occurrence: DE)
  Receive Date: 20200211
  Receipt Date: 20200211
  Transmission Date: 20200409
  Serious: Yes (Life-Threatening, Hospitalization)
  Sender: FDA-Public Use
  Company Number: DE-BAYER-2020-020186

PATIENT
  Age: 79 Year
  Sex: Female

DRUGS (1)
  1. GADOVIST [Suspect]
     Active Substance: GADOBUTROL
     Indication: HEADACHE
     Dosage: UNK UNK, ONCE
     Dates: start: 202002, end: 202002

REACTIONS (3)
  - Cardiac failure [None]
  - Anaphylactic shock [None]
  - Coma [None]

NARRATIVE: CASE EVENT DATE: 202002
